FAERS Safety Report 11875142 (Version 1)
Quarter: 2015Q4

REPORT INFORMATION
  Report Type: Spontaneous
  Country: US (occurrence: None)
  Receive Date: 20151228
  Receipt Date: 20151228
  Transmission Date: 20160305
  Serious: Yes (Life-Threatening, Other)
  Sender: FDA-Public Use
  Company Number: None

PATIENT
  Age: 60 Year
  Sex: Female
  Weight: 43.09 kg

DRUGS (3)
  1. MULTIVITAMIN [Concomitant]
     Active Substance: VITAMINS
  2. RESTASIS [Suspect]
     Active Substance: CYCLOSPORINE
     Indication: DRY EYE
     Dosage: 1 DROP  INTO THE EYE
     Route: 047
     Dates: start: 20151210, end: 20151211
  3. SYNTHROID [Concomitant]
     Active Substance: LEVOTHYROXINE SODIUM

REACTIONS (9)
  - Ocular hyperaemia [None]
  - Eye irritation [None]
  - Eye pruritus [None]
  - Photophobia [None]
  - Lacrimation increased [None]
  - Vision blurred [None]
  - Eye pain [None]
  - Halo vision [None]
  - Epistaxis [None]

NARRATIVE: CASE EVENT DATE: 20151210
